FAERS Safety Report 7604398-2 (Version None)
Quarter: 2011Q2

REPORT INFORMATION
  Report Type: 
  Country: None (occurrence: None)
  Receive Date: 20110630
  Receipt Date: 20110617
  Transmission Date: 20111010
  Serious: Yes (Death, Hospitalization, Disabling, Other)
  Sender: FDA-Public Use
  Company Number: CIP08001077

PATIENT
  Age: 53 Year
  Sex: Male

DRUGS (17)
  1. NEUROVITAN /00176001/ (CYANOCOBALAMIN, PYRIDOXINE HYDROCHLORIDE,THIAMI [Concomitant]
  2. LIVACT /00847901/ (VALINE, LEUCINE, ISOLEUCINE) [Concomitant]
  3. ANPLAG (SARPOGRELATE HYDROCHLORIDE) [Concomitant]
  4. ALLOPURINOL [Concomitant]
  5. TAKEPRON (LANSOPRAZOLE) [Concomitant]
  6. TULOBUTEROL (TULOBUTEROL) [Concomitant]
  7. LACTULOSE [Concomitant]
  8. METHYCOBAL /00324901/ (MECOBALAMIN) [Concomitant]
  9. KETOPROFEN [Concomitant]
  10. CALTAN (CALCIUM CARBONATE) [Concomitant]
  11. PORTILAC (LACTITOL) [Concomitant]
  12. METLIGINE (MIDODRINE HYDROCHLORIDE) [Concomitant]
  13. CALTAN (CALCIUM CARBONATE) [Concomitant]
  14. DIDRONEL [Suspect]
     Indication: OSTEOPOROSIS
     Dosage: 200 MG AT BEDTIME, ORAL
     Route: 048
     Dates: start: 20050506, end: 20050520
  15. TAURINE (TAURINE) [Concomitant]
  16. GASTROM (ECABET MONOSODIUM) [Concomitant]
  17. PROMAC /01312301/ (POLAPREZINC) [Concomitant]

REACTIONS (37)
  - FEMORAL NECK FRACTURE [None]
  - QUALITY OF LIFE DECREASED [None]
  - PAIN IN EXTREMITY [None]
  - PAPILLOPHLEBITIS [None]
  - VASCULITIS [None]
  - GENERAL PHYSICAL HEALTH DETERIORATION [None]
  - IMMUNODEFICIENCY [None]
  - PAPILLOEDEMA [None]
  - DISUSE SYNDROME [None]
  - MUSCULOSKELETAL PAIN [None]
  - VASCULAR CALCIFICATION [None]
  - ARTHRALGIA [None]
  - PLEURAL EFFUSION [None]
  - HAND FRACTURE [None]
  - RIB FRACTURE [None]
  - HYPOPROTEINAEMIA [None]
  - GAIT DISTURBANCE [None]
  - PULMONARY OEDEMA [None]
  - FRACTURE DELAYED UNION [None]
  - OSTEOPOROSIS [None]
  - CONDITION AGGRAVATED [None]
  - ACTIVITIES OF DAILY LIVING IMPAIRED [None]
  - INCORRECT DRUG ADMINISTRATION DURATION [None]
  - VISUAL IMPAIRMENT [None]
  - BEDRIDDEN [None]
  - DECREASED ACTIVITY [None]
  - AMMONIA INCREASED [None]
  - ASTHENIA [None]
  - BURSITIS [None]
  - ULNA FRACTURE [None]
  - SEPSIS [None]
  - MULTIPLE FRACTURES [None]
  - BLINDNESS UNILATERAL [None]
  - OSTEOMALACIA [None]
  - BONE PAIN [None]
  - C-REACTIVE PROTEIN INCREASED [None]
  - RADIUS FRACTURE [None]
